FAERS Safety Report 8898780 (Version 3)
Quarter: 2012Q4

REPORT INFORMATION
  Report Type: Report from Study
  Country: DE (occurrence: DE)
  Receive Date: 20121109
  Receipt Date: 20121205
  Transmission Date: 20130627
  Serious: Yes (Hospitalization, Other)
  Sender: FDA-Public Use
  Company Number: DE-ABBOTT-12P-062-1002581-00

PATIENT
  Age: 53 Year
  Sex: Female
  Weight: 161 kg

DRUGS (4)
  1. HUMIRA [Suspect]
     Dosage: 40 mg eow
     Route: 058
     Dates: start: 20120419, end: 20120823
  2. URBASON [Concomitant]
     Indication: RHEUMATOID ARTHRITIS
     Dosage: 24 mg NOS
     Route: 048
     Dates: start: 20110609
  3. CELEBREX [Concomitant]
     Indication: RHEUMATOID ARTHRITIS
     Dosage: 400 mg NOS
     Route: 048
     Dates: start: 20120628, end: 20120712
  4. SULFASALAZIN [Concomitant]
     Indication: RHEUMATOID ARTHRITIS
     Dosage: 3g NOS
     Dates: start: 20100805

REACTIONS (3)
  - Goitre [Recovered/Resolved]
  - Hypocalcaemia [Unknown]
  - Drug ineffective [Unknown]
